FAERS Safety Report 7948784-X (Version None)
Quarter: 2011Q4

REPORT INFORMATION
  Report Type: 
  Country: None (occurrence: None)
  Receive Date: 20111123
  Receipt Date: 20111114
  Transmission Date: 20120403
  Serious: Yes (Other)
  Sender: FDA-Public Use
  Company Number: 2010AL000594

PATIENT
  Age: 75 Year
  Sex: Male
  Weight: 93.441 kg

DRUGS (32)
  1. AMOXICILLIN [Concomitant]
  2. OXYCODONE HCL [Concomitant]
  3. CARBIDOPA [Concomitant]
  4. CEPHALEXIN [Concomitant]
  5. ENALAPRIL MALEATE [Concomitant]
  6. FINASTERIDE [Concomitant]
  7. JANUVIA [Concomitant]
  8. PREDNISONE TAB [Concomitant]
  9. LEVODOPA [Concomitant]
  10. TYLENOL PM [Concomitant]
  11. COGENTIN [Concomitant]
  12. CODEINE [Concomitant]
  13. AZITHROMYCIN [Concomitant]
  14. CEFDINIR [Concomitant]
  15. GABAPENTIN [Concomitant]
  16. HYDROCODONE [Concomitant]
  17. PRAVACHOL [Concomitant]
  18. CLONAZEPAM [Concomitant]
  19. TEGRETOL-XR [Concomitant]
  20. FLOMAX [Concomitant]
  21. PENICILLIN VK [Concomitant]
  22. SKELAXIN [Concomitant]
  23. ACETAMINOPHEN [Concomitant]
  24. VIOXX [Concomitant]
  25. ASPIRIN [Concomitant]
  26. METOCLOPRAMIDE [Suspect]
     Indication: DECREASED APPETITE
     Dosage: 10 MG
     Dates: start: 19940101, end: 20081201
  27. METOCLOPRAMIDE [Suspect]
     Indication: NAUSEA
     Dosage: 10 MG
     Dates: start: 19940101, end: 20081201
  28. CELEBREX [Concomitant]
  29. CYPROHEPTADINE HCL [Concomitant]
  30. PROPOXYPHENE HYDROCHLORIDE [Concomitant]
  31. DOPA THERAPY [Concomitant]
  32. JANUMET [Concomitant]

REACTIONS (37)
  - TOOTHACHE [None]
  - BENIGN PROSTATIC HYPERPLASIA [None]
  - TARDIVE DYSKINESIA [None]
  - DYSARTHRIA [None]
  - TEMPOROMANDIBULAR JOINT SYNDROME [None]
  - BRUXISM [None]
  - MOVEMENT DISORDER [None]
  - PARAESTHESIA [None]
  - DRY MOUTH [None]
  - BACK PAIN [None]
  - SNORING [None]
  - DYSTONIA [None]
  - DYSPEPSIA [None]
  - POLLAKIURIA [None]
  - PARKINSONISM [None]
  - HYPOAESTHESIA [None]
  - NECK PAIN [None]
  - PAIN IN JAW [None]
  - DISCOMFORT [None]
  - NEPHROLITHIASIS [None]
  - RHINITIS ALLERGIC [None]
  - TONGUE DISORDER [None]
  - PARKINSON'S DISEASE [None]
  - DYSPHAGIA [None]
  - DIZZINESS [None]
  - DYSKINESIA [None]
  - ORAL DISCOMFORT [None]
  - EAR PAIN [None]
  - FACIAL PAIN [None]
  - SENSITIVITY OF TEETH [None]
  - TONGUE BITING [None]
  - TOOTH FRACTURE [None]
  - MUSCLE TIGHTNESS [None]
  - HYPERTENSION [None]
  - OSTEOARTHRITIS [None]
  - TYPE 2 DIABETES MELLITUS [None]
  - ARTHRALGIA [None]
